APPROVED DRUG PRODUCT: CETIRIZINE HYDROCHLORIDE HIVES RELIEF
Active Ingredient: CETIRIZINE HYDROCHLORIDE
Strength: 10MG
Dosage Form/Route: CAPSULE;ORAL
Application: N022429 | Product #002
Applicant: BIONPHARMA INC
Approved: Jul 23, 2009 | RLD: Yes | RS: Yes | Type: OTC